FAERS Safety Report 7340985-7 (Version None)
Quarter: 2011Q1

REPORT INFORMATION
  Report Type: 
  Country: None (occurrence: None)
  Receive Date: 20110228
  Receipt Date: 20110211
  Transmission Date: 20110831
  Serious: Yes (Life-Threatening, Hospitalization, Other)
  Sender: FDA-Public Use
  Company Number: IPC201102-000124

PATIENT
  Age: 88 Year
  Sex: Female

DRUGS (3)
  1. FLECAINIDE [Suspect]
     Indication: CARDIAC FIBRILLATION
     Dosage: 100 MG TWICE DAILY (FOR 5 YEARS)
  2. METOPROLOL TARTRATE [Suspect]
     Dosage: 200 MG DAILY;
  3. ASPIRIN [Suspect]

REACTIONS (8)
  - SYNCOPE [None]
  - DEVICE MALFUNCTION [None]
  - RENAL FAILURE ACUTE [None]
  - HYPERKALAEMIA [None]
  - DRUG INTERACTION [None]
  - HEART RATE IRREGULAR [None]
  - DEHYDRATION [None]
  - TOXICITY TO VARIOUS AGENTS [None]
